FAERS Safety Report 4816673-5 (Version None)
Quarter: 2005Q4

REPORT INFORMATION
  Report Type: 
  Country: None (occurrence: None)
  Receive Date: 20051101
  Receipt Date: 20051020
  Transmission Date: 20060501
  Serious: Yes (Hospitalization, Other)
  Sender: FDA-Public Use
  Company Number: ES-AMGEN-UK155062

PATIENT
  Age: 59 Year
  Sex: Male
  Weight: 90 kg

DRUGS (30)
  1. NEUPOGEN [Suspect]
     Indication: NEUTROPENIA
     Route: 042
     Dates: start: 20051010, end: 20051019
  2. ALBUMIN (HUMAN) [Concomitant]
     Route: 042
  3. PANTOPRAZOLE [Concomitant]
     Route: 042
  4. FUROSEMIDE [Concomitant]
     Route: 042
  5. LORAZEPAM [Concomitant]
     Route: 065
  6. POTASSIUM [Concomitant]
     Route: 065
  7. TAMSULOSIN HCL [Concomitant]
     Route: 065
  8. SODIUM BICARBONATE [Concomitant]
     Route: 065
  9. SODIUM CHLORIDE [Concomitant]
     Route: 065
  10. METOCLOPRAMIDE [Concomitant]
     Route: 042
  11. ONDANSETRON [Concomitant]
     Route: 042
  12. LOPERAMIDE [Concomitant]
     Route: 065
  13. ACETAMINOPHEN [Concomitant]
     Route: 042
  14. ACYCLOVIR [Concomitant]
     Route: 042
  15. CIPROFLOXACIN [Concomitant]
     Route: 065
  16. CASPOFUNGIN [Concomitant]
     Route: 042
  17. FLUCONAZOLE [Concomitant]
     Route: 042
  18. GLUCOSE [Concomitant]
     Route: 065
  19. OMEPRAZOLE [Concomitant]
     Route: 042
  20. AMIKACIN SULFATE [Concomitant]
     Route: 042
  21. DICLOFENAC SODIUM [Concomitant]
     Route: 042
  22. CEFOTAXIME [Concomitant]
     Route: 042
  23. CILASTATIN SODIUM W/IMIPENEM [Concomitant]
     Route: 042
  24. DIPHENHYDRAMINE HCL [Concomitant]
     Route: 042
  25. HEPARIN [Concomitant]
     Route: 058
  26. MESNA [Concomitant]
     Route: 042
  27. PHYTOMENADION [Concomitant]
     Route: 042
  28. MEROPENEM [Concomitant]
     Route: 042
  29. LAMIVUDINE [Concomitant]
     Route: 065
  30. INSULIN [Concomitant]
     Route: 058

REACTIONS (3)
  - CAPILLARY LEAK SYNDROME [None]
  - VENOOCCLUSIVE LIVER DISEASE [None]
  - WEIGHT INCREASED [None]
